FAERS Safety Report 5787868-1 (Version None)
Quarter: 2008Q2

REPORT INFORMATION
  Report Type: 
  Country: None (occurrence: None)
  Receive Date: 20080618
  Receipt Date: 20070612
  Transmission Date: 20081010
  Serious: Yes (Other)
  Sender: FDA-Public Use
  Company Number: 200710706US

PATIENT
  Age: 84 Year
  Sex: Male

DRUGS (12)
  1. LANTUS [Suspect]
     Indication: TYPE 2 DIABETES MELLITUS
     Dosage: 25 U QD
     Dates: start: 20070114
  2. OPTICLIK [Suspect]
     Indication: TYPE 2 DIABETES MELLITUS
  3. GLIMEPIRIDE [Concomitant]
  4. ASPIRIN [Concomitant]
  5. LISINOPRIL [Concomitant]
  6. ATENOLOL [Concomitant]
  7. TERAZOSIN HCL [Concomitant]
  8. BIMATOPROST (LUMIGAN) [Concomitant]
  9. TIMOLOL MALEATE, DORZOLAMIDE HYDROCHLORIDE (COSOPT /01419801/) [Concomitant]
  10. LIPITOR [Concomitant]
  11. ERGOCALCIFEROL, ASCORBIC ACID, FOLIC ACID, THIAMINE HYDROCHLORIDE, RET [Concomitant]
  12. MULTI-VITAMINS [Concomitant]

REACTIONS (4)
  - BLOOD GLUCOSE INCREASED [None]
  - COLD SWEAT [None]
  - HYPOGLYCAEMIA [None]
  - OVERDOSE [None]
